FAERS Safety Report 12569472 (Version 1)
Quarter: 2016Q3

REPORT INFORMATION
  Report Type: Spontaneous
  Country: US (occurrence: US)
  Receive Date: 20160719
  Receipt Date: 20160719
  Transmission Date: 20161109
  Serious: No
  Sender: FDA-Public Use
  Company Number: US-BEH-2016070848

PATIENT
  Sex: Female
  Weight: 79.82 kg

DRUGS (31)
  1. ASTEPRO [Concomitant]
     Active Substance: AZELASTINE HYDROCHLORIDE
  2. FOLIC ACID. [Concomitant]
     Active Substance: FOLIC ACID
  3. LEVOTHYROXINE. [Concomitant]
     Active Substance: LEVOTHYROXINE
  4. CALCIUM [Concomitant]
     Active Substance: CALCIUM
  5. MALIC ACID [Concomitant]
     Active Substance: MALIC ACID
  6. GUAIFENESIN. [Concomitant]
     Active Substance: GUAIFENESIN
  7. VITAMIN D                          /00107901/ [Concomitant]
     Active Substance: ERGOCALCIFEROL
  8. DHEA [Concomitant]
     Active Substance: PRASTERONE
  9. PRILOSEC [Concomitant]
     Active Substance: OMEPRAZOLE MAGNESIUM
  10. ASPIRIN. [Concomitant]
     Active Substance: ASPIRIN
  11. MULTIVITAMIN                       /00097801/ [Concomitant]
     Active Substance: VITAMINS
  12. HIZENTRA [Suspect]
     Active Substance: HUMAN IMMUNOGLOBULIN G
     Indication: IMMUNODEFICIENCY COMMON VARIABLE
     Dosage: 10 G, QW
     Route: 058
  13. CYCLOBENZAPRINE [Concomitant]
     Active Substance: CYCLOBENZAPRINE
  14. LASIX [Concomitant]
     Active Substance: FUROSEMIDE
  15. ESTER C                            /00008001/ [Concomitant]
     Indication: PRODUCT USED FOR UNKNOWN INDICATION
  16. GARLIC                             /01570501/ [Concomitant]
     Active Substance: GARLIC
  17. CHROMIUM [Concomitant]
     Active Substance: CHROMIC CHLORIDE\CHROMIUM
  18. OCUVITE [Concomitant]
     Active Substance: VITAMINS
  19. RESTASIS [Concomitant]
     Active Substance: CYCLOSPORINE
  20. VALERIAN ROOT                      /01561603/ [Concomitant]
     Active Substance: VALERIAN
  21. ULTRAM [Concomitant]
     Active Substance: TRAMADOL HYDROCHLORIDE
  22. L LYSINE                           /00919901/ [Concomitant]
  23. TESTOSTERONE. [Concomitant]
     Active Substance: TESTOSTERONE
  24. CRANBERRY                          /01512301/ [Concomitant]
     Active Substance: CRANBERRY
  25. DIPHENHYDRAMINE. [Concomitant]
     Active Substance: DIPHENHYDRAMINE
  26. EPIPEN [Concomitant]
     Active Substance: EPINEPHRINE
  27. LMX                                /00033401/ [Concomitant]
  28. PREDNISONE. [Concomitant]
     Active Substance: PREDNISONE
  29. PILOCARPINE. [Concomitant]
     Active Substance: PILOCARPINE
  30. COENZYME Q10 [Concomitant]
     Active Substance: UBIDECARENONE
  31. MELATONIN [Concomitant]
     Active Substance: MELATONIN

REACTIONS (2)
  - Post-traumatic neck syndrome [Unknown]
  - Gastric polyps [Unknown]
